FAERS Safety Report 19905225 (Version 2)
Quarter: 2021Q4

REPORT INFORMATION
  Report Type: Report from Study
  Country: TW (occurrence: TW)
  Receive Date: 20211001
  Receipt Date: 20211102
  Transmission Date: 20220303
  Serious: Yes (Hospitalization, Other)
  Sender: FDA-Public Use
  Company Number: TW-BAYER-2021A218520

PATIENT

DRUGS (3)
  1. EYLEA [Suspect]
     Active Substance: AFLIBERCEPT
     Indication: Neovascular age-related macular degeneration
     Dosage: 0.05 ML, 1 INJECTION OF RIGHT EYE
     Route: 031
     Dates: start: 202107, end: 202107
  2. EYLEA [Suspect]
     Active Substance: AFLIBERCEPT
     Dosage: 0.05 ML, 1 INJECTION OF RIGHT EYE AND 1 INJECTION OF LEFT EYE
     Route: 031
     Dates: start: 202108, end: 202108
  3. EYLEA [Suspect]
     Active Substance: AFLIBERCEPT
     Dosage: 0.05 ML, 1 INJECTION OF RIGHT EYE AND 1 INJECTION OF LEFT EYE
     Route: 031
     Dates: start: 20210917

REACTIONS (4)
  - Chest discomfort [Not Recovered/Not Resolved]
  - Dyspnoea [Not Recovered/Not Resolved]
  - Photophobia [Not Recovered/Not Resolved]
  - Weight decreased [Unknown]

NARRATIVE: CASE EVENT DATE: 20210701
